FAERS Safety Report 9471817 (Version 1)
Quarter: 2013Q3

REPORT INFORMATION
  Report Type: Spontaneous
  Country: US (occurrence: None)
  Receive Date: 20130819
  Receipt Date: 20130819
  Transmission Date: 20140515
  Serious: Yes (Other)
  Sender: FDA-Public Use
  Company Number: US-012578

PATIENT
  Age: 10 Year
  Sex: Male
  Weight: 29.48 kg

DRUGS (5)
  1. TEV-TROPIN [Suspect]
     Indication: GROWTH HORMONE DEFICIENCY
     Dates: start: 20130326, end: 20130730
  2. RISPERDAL [Concomitant]
  3. ADDERALL [Concomitant]
  4. INTUNIV [Concomitant]
  5. TENEX [Concomitant]

REACTIONS (4)
  - Hydronephrosis [None]
  - Vesicoureteric reflux [None]
  - Renal failure [None]
  - Prescribed overdose [None]
